FAERS Safety Report 8499892-9 (Version None)
Quarter: 2012Q3

REPORT INFORMATION
  Report Type: 
  Country: None (occurrence: None)
  Receive Date: 20120710
  Receipt Date: 20120704
  Transmission Date: 20120928
  Serious: Yes (Other)
  Sender: FDA-Public Use
  Company Number: PHHY2012DE058151

PATIENT
  Age: 55 Year
  Sex: Male

DRUGS (2)
  1. RASILEZ [Suspect]
     Indication: HYPERTENSION
     Dates: start: 20100101, end: 20110101
  2. RASILEZ HCT [Suspect]
     Indication: HYPERTENSION
     Dates: start: 20110101

REACTIONS (1)
  - FIBROMATOSIS [None]
